FAERS Safety Report 7898573-X (Version None)
Quarter: 2011Q4

REPORT INFORMATION
  Report Type: 
  Country: None (occurrence: None)
  Receive Date: 20111107
  Receipt Date: 20111028
  Transmission Date: 20120403
  Serious: Yes (Other)
  Sender: FDA-Public Use
  Company Number: DE-ABBOTT-11P-013-0855769-00

PATIENT
  Sex: Female
  Weight: 80 kg

DRUGS (11)
  1. MELOXICAM [Concomitant]
     Indication: SPONDYLITIS
     Dates: start: 20100301, end: 20110509
  2. HUMIRA [Suspect]
     Indication: SPONDYLITIS
     Route: 058
     Dates: start: 20100526, end: 20100609
  3. HUMIRA [Suspect]
     Dates: end: 20110608
  4. AMOXICILLIN [Concomitant]
     Indication: SINUSITIS
     Dates: start: 20110411, end: 20110418
  5. NASONEX [Concomitant]
     Indication: SINUSITIS
  6. AUGMENTIN [Concomitant]
     Indication: BRONCHITIS
     Route: 048
     Dates: start: 20110303, end: 20110311
  7. VALETTE [Concomitant]
     Indication: CONTRACEPTION
     Dosage: 0.03/2
     Dates: start: 20090101, end: 20110601
  8. MELOXICAM [Concomitant]
     Dates: start: 20110510, end: 20110615
  9. NASONEX [Concomitant]
     Indication: BRONCHITIS
     Route: 045
     Dates: start: 20110303, end: 20110311
  10. ALBUTEROL SULFATE AUTOHALER [Concomitant]
     Indication: BRONCHITIS
     Route: 045
     Dates: start: 20110303, end: 20110311
  11. IBUPROFEN [Concomitant]
     Indication: MIGRAINE
     Route: 048
     Dates: start: 20040101, end: 20110701

REACTIONS (1)
  - ABORTION SPONTANEOUS [None]
